FAERS Safety Report 6918857-9 (Version None)
Quarter: 2010Q3

REPORT INFORMATION
  Report Type: 
  Country: None (occurrence: None)
  Receive Date: 20100811
  Receipt Date: 20100319
  Transmission Date: 20110219
  Serious: No
  Sender: FDA-Public Use
  Company Number: US-TYCO HEALTHCARE/MALLINCKRODT-T201000882

PATIENT

DRUGS (5)
  1. ACETAMINOPHEN AND HYDROCODONE BITARTRATE [Suspect]
     Indication: PAIN
     Dosage: 1 TABLET, EVERY 6 HOURS, PRN
     Route: 048
     Dates: start: 20100201
  2. NEURONTIN [Concomitant]
     Indication: NEUROPATHY PERIPHERAL
     Dosage: 400 MG, TID
     Route: 048
  3. TYLENOL (CAPLET) [Concomitant]
     Indication: NEUROPATHY PERIPHERAL
     Dosage: 1 TABLET, UNK
     Route: 048
  4. FLEXERIL [Concomitant]
     Dosage: 1 TABLET, TID
     Route: 048
  5. ATIVAN [Concomitant]
     Dosage: UNK, PRN
     Route: 048

REACTIONS (4)
  - NIGHT SWEATS [None]
  - PALPITATIONS [None]
  - SLEEP TERROR [None]
  - TREMOR [None]
